FAERS Safety Report 11969935 (Version 1)
Quarter: 2016Q1

REPORT INFORMATION
  Report Type: Spontaneous
  Country: US (occurrence: US)
  Receive Date: 20160128
  Receipt Date: 20160128
  Transmission Date: 20160526
  Serious: Yes (Death)
  Sender: FDA-Public Use
  Company Number: CHPA2016US000948

PATIENT
  Age: 52 Year
  Sex: Male

DRUGS (1)
  1. NODOZ [Suspect]
     Active Substance: CAFFEINE
     Indication: PRODUCT USED FOR UNKNOWN INDICATION
     Dosage: 30 DF, UNK
     Route: 065

REACTIONS (4)
  - Congestive cardiomyopathy [Fatal]
  - Cardiac arrest [Fatal]
  - Haematemesis [Fatal]
  - Toxicity to various agents [Fatal]
